APPROVED DRUG PRODUCT: AMIODARONE HYDROCHLORIDE
Active Ingredient: AMIODARONE HYDROCHLORIDE
Strength: 400MG
Dosage Form/Route: TABLET;ORAL
Application: A075315 | Product #002
Applicant: UPSHER SMITH LABORATORIES LLC
Approved: Jun 30, 2000 | RLD: No | RS: No | Type: DISCN